FAERS Safety Report 10913619 (Version 1)
Quarter: 2015Q1

REPORT INFORMATION
  Report Type: Spontaneous
  Country: US (occurrence: None)
  Receive Date: 20150128
  Receipt Date: 20150128
  Transmission Date: 20150721
  Serious: No
  Sender: FDA-Public Use
  Company Number: 2014TUS013183

PATIENT
  Age: 65 Year
  Sex: Female
  Weight: 49.9 kg

DRUGS (3)
  1. CYTOMEL (LIOTHYRONINE SODIUM) [Concomitant]
  2. BRINTELLIX [Suspect]
     Active Substance: VORTIOXETINE HYDROBROMIDE
     Indication: DEPRESSION
     Route: 048
     Dates: start: 20140908, end: 20141008
  3. SYNTHROID [Concomitant]
     Active Substance: LEVOTHYROXINE SODIUM

REACTIONS (5)
  - Drug ineffective [None]
  - Prescribed overdose [None]
  - Nausea [None]
  - Vomiting [None]
  - Restless legs syndrome [None]

NARRATIVE: CASE EVENT DATE: 20140908
